FAERS Safety Report 6079350-1 (Version None)
Quarter: 2009Q1

REPORT INFORMATION
  Report Type: 
  Country: None (occurrence: None)
  Receive Date: 20090216
  Receipt Date: 20090211
  Transmission Date: 20090719
  Serious: Yes (Hospitalization)
  Sender: FDA-Public Use
  Company Number: CH-WYE-G03054909

PATIENT
  Age: 69 Year
  Sex: Female

DRUGS (11)
  1. EFFEXOR [Suspect]
     Route: 048
     Dates: start: 20080612, end: 20080623
  2. EFFEXOR [Interacting]
     Route: 048
     Dates: start: 20080624, end: 20080628
  3. EFFEXOR [Interacting]
     Route: 048
     Dates: start: 20080629, end: 20080703
  4. EFFEXOR [Interacting]
     Route: 048
     Dates: start: 20080704
  5. ASPRO CARDIO [Concomitant]
     Route: 048
     Dates: start: 20030101
  6. DIOVAN HCT [Concomitant]
     Route: 048
     Dates: start: 20070101
  7. SEROQUEL [Interacting]
     Route: 048
     Dates: start: 20080605, end: 20080606
  8. SEROQUEL [Interacting]
     Route: 048
     Dates: start: 20080607, end: 20080613
  9. SEROQUEL [Interacting]
     Route: 048
     Dates: start: 20080614, end: 20080702
  10. SEROQUEL [Interacting]
     Route: 048
     Dates: start: 20080703, end: 20080818
  11. SEROQUEL [Interacting]
     Route: 048
     Dates: start: 20080819

REACTIONS (9)
  - CATATONIA [None]
  - DELIRIUM [None]
  - DIET REFUSAL [None]
  - DISORIENTATION [None]
  - DRUG INTERACTION [None]
  - GENERAL PHYSICAL CONDITION ABNORMAL [None]
  - HALLUCINATION [None]
  - SPEECH DISORDER [None]
  - TREMOR [None]
